FAERS Safety Report 7379266-4 (Version None)
Quarter: 2011Q1

REPORT INFORMATION
  Report Type: 
  Country: None (occurrence: None)
  Receive Date: 20110328
  Receipt Date: 20110321
  Transmission Date: 20110831
  Serious: Yes (Hospitalization)
  Sender: FDA-Public Use
  Company Number: FR-BRISTOL-MYERS SQUIBB COMPANY-15627318

PATIENT
  Age: 87 Year
  Sex: Female

DRUGS (4)
  1. COUMADIN [Suspect]
     Dosage: 1 DF = 1 TAB IN THE EVENING
     Route: 048
     Dates: start: 20091118
  2. DIGOXIN [Concomitant]
     Dosage: 1 DF = 1 TAB IN THE MORNING
  3. GARDENAL [Concomitant]
     Dosage: 1 DF = 1 TABLET EVERY TWO EVENINGS
  4. DI-HYDAN [Concomitant]

REACTIONS (2)
  - FEMUR FRACTURE [None]
  - INTERNATIONAL NORMALISED RATIO INCREASED [None]
